FAERS Safety Report 4774742-2 (Version None)
Quarter: 2005Q3

REPORT INFORMATION
  Report Type: 
  Country: None (occurrence: None)
  Receive Date: 20050921
  Receipt Date: 20050908
  Transmission Date: 20060218
  Serious: Yes (Hospitalization)
  Sender: FDA-Public Use
  Company Number: FR-GLAXOSMITHKLINE-B0393117A

PATIENT
  Age: 46 Year
  Sex: Female

DRUGS (3)
  1. LAMICTAL [Suspect]
     Indication: EPILEPSY
     Dosage: 400MG PER DAY
     Route: 048
  2. CLONAZEPAM [Suspect]
     Indication: EPILEPSY
     Dosage: 3MG PER DAY
     Route: 048
  3. EPITOMAX [Suspect]
     Indication: EPILEPSY
     Dosage: 300MG PER DAY
     Route: 048

REACTIONS (6)
  - ANTITHROMBIN III DECREASED [None]
  - CONVULSION [None]
  - DYSPNOEA [None]
  - PAIN [None]
  - PROTEIN C DECREASED [None]
  - PULMONARY EMBOLISM [None]
